FAERS Safety Report 14662085 (Version 2)
Quarter: 2018Q2

REPORT INFORMATION
  Report Type: Spontaneous
  Country: CO (occurrence: CO)
  Receive Date: 20180321
  Receipt Date: 20180516
  Transmission Date: 20180711
  Serious: Yes (Hospitalization, Other)
  Sender: FDA-Public Use
  Company Number: CO-AMGEN-COLSP2018037831

PATIENT
  Age: 56 Year
  Sex: Female

DRUGS (1)
  1. ENBREL [Suspect]
     Active Substance: ETANERCEPT
     Indication: RHEUMATOID ARTHRITIS
     Dosage: 50 MG, QWK
     Route: 058
     Dates: start: 2008, end: 201801

REACTIONS (4)
  - Neoplasm progression [Unknown]
  - Influenza [Unknown]
  - Pulmonary mass [Unknown]
  - Intracranial mass [Unknown]

NARRATIVE: CASE EVENT DATE: 201712
